FAERS Safety Report 8184493-2 (Version None)
Quarter: 2012Q1

REPORT INFORMATION
  Report Type: 
  Country: None (occurrence: None)
  Receive Date: 20120305
  Receipt Date: 20120223
  Transmission Date: 20120608
  Serious: Yes (Other)
  Sender: FDA-Public Use
  Company Number: US-SANOFI-AVENTIS-2012SA012460

PATIENT
  Age: 68 Year
  Sex: Female
  Weight: 82 kg

DRUGS (3)
  1. PLAVIX [Suspect]
     Indication: STENT PLACEMENT
     Route: 048
     Dates: start: 20070101
  2. ALL OTHER THERAPEUTIC PRODUCTS [Concomitant]
  3. PLAVIX [Suspect]
     Route: 048
     Dates: start: 20070101

REACTIONS (10)
  - GAIT DISTURBANCE [None]
  - PAIN [None]
  - CONDITION AGGRAVATED [None]
  - DYSPHAGIA [None]
  - OEDEMA PERIPHERAL [None]
  - SPINAL DISORDER [None]
  - POOR QUALITY SLEEP [None]
  - PNEUMONITIS [None]
  - ASTHENIA [None]
  - CRYING [None]
